FAERS Safety Report 22871483 (Version 3)
Quarter: 2024Q1

REPORT INFORMATION
  Report Type: Spontaneous
  Country: US (occurrence: US)
  Receive Date: 20230828
  Receipt Date: 20240229
  Transmission Date: 20240410
  Serious: Yes (Other)
  Sender: FDA-Public Use
  Company Number: US-APELLIS PHARMACEUTICALS-APL-2023-002846

PATIENT
  Age: 86 Year
  Sex: Male

DRUGS (1)
  1. SYFOVRE [Suspect]
     Active Substance: PEGCETACOPLAN
     Indication: Dry age-related macular degeneration
     Dosage: 15 MILLIGRAM
     Dates: start: 20230718, end: 20230718

REACTIONS (1)
  - Vitritis [Recovered/Resolved]

NARRATIVE: CASE EVENT DATE: 20230804
